FAERS Safety Report 5092872-5 (Version None)
Quarter: 2006Q3

REPORT INFORMATION
  Report Type: 
  Country: None (occurrence: None)
  Receive Date: 20060727
  Receipt Date: 20060619
  Transmission Date: 20061208
  Serious: Yes (Other)
  Sender: FDA-Public Use
  Company Number: 2006079769

PATIENT
  Age: 75 Year
  Sex: Female
  Weight: 72.5755 kg

DRUGS (3)
  1. LYRICA [Suspect]
     Indication: PAIN IN EXTREMITY
     Dosage: 1/2 CAPSULE (75 MG,1 IN 1 D)
     Dates: start: 20060619, end: 20060619
  2. KLONOPIN [Concomitant]
  3. ASPIRIN [Concomitant]

REACTIONS (3)
  - AGITATION [None]
  - DEPRESSION [None]
  - DYSPNOEA [None]
